FAERS Safety Report 6504936-7 (Version None)
Quarter: 2009Q4

REPORT INFORMATION
  Report Type: 
  Country: None (occurrence: None)
  Receive Date: 20091218
  Receipt Date: 20091215
  Transmission Date: 20100525
  Serious: Yes (Hospitalization)
  Sender: FDA-Public Use
  Company Number: DE-SANOFI-AVENTIS-2009SA001490

PATIENT
  Sex: Female
  Weight: 60 kg

DRUGS (6)
  1. ARAVA [Suspect]
     Indication: RHEUMATOID ARTHRITIS
     Route: 048
     Dates: start: 20090101, end: 20091001
  2. PREDNISOLONE [Concomitant]
     Indication: RHEUMATOID ARTHRITIS
  3. ALL OTHER THERAPEUTIC PRODUCTS [Concomitant]
     Indication: RHEUMATOID ARTHRITIS
     Route: 058
     Dates: start: 20090201
  4. VERAPAMIL [Concomitant]
     Indication: HYPERTENSION
  5. ATACAND [Concomitant]
  6. HYDROCHLOROTHIAZIDE [Concomitant]
     Indication: HYPERTENSION

REACTIONS (4)
  - CONDITION AGGRAVATED [None]
  - PRURITUS [None]
  - PSORIASIS [None]
  - SKIN PLAQUE [None]
